FAERS Safety Report 7260519-5 (Version None)
Quarter: 2011Q1

REPORT INFORMATION
  Report Type: 
  Country: None (occurrence: None)
  Receive Date: 20110130
  Receipt Date: 20101216
  Transmission Date: 20110831
  Serious: No
  Sender: FDA-Public Use
  Company Number: US-ABBOTT-10P-163-0692668-00

PATIENT
  Sex: Male
  Weight: 88.53 kg

DRUGS (21)
  1. ALAMIDE [Concomitant]
     Indication: SWELLING
     Dosage: PRN
     Route: 047
  2. HUMIRA [Suspect]
     Indication: PSORIATIC ARTHROPATHY
     Dosage: 1 EVERY 2 WEEKS, INTERRUPTED
     Route: 058
     Dates: start: 20091013, end: 20100830
  3. COLCHICINE [Concomitant]
     Indication: GOUT
     Dosage: 2 TABLETS DAILY
  4. FLONASE [Concomitant]
     Indication: HYPERSENSITIVITY
     Dosage: NASAL SPRAY PRN
  5. ATARAX [Concomitant]
     Indication: PALATAL OEDEMA
     Dosage: PRN
  6. FOLIC ACID [Concomitant]
     Indication: PRODUCT USED FOR UNKNOWN INDICATION
  7. ALBUTEROL [Concomitant]
     Indication: HYPERSENSITIVITY
     Dosage: PRN
  8. ALAMIDE [Concomitant]
     Indication: MULTIPLE ALLERGIES
  9. ATARAX [Concomitant]
     Indication: MULTIPLE ALLERGIES
  10. ALLOPURINOL [Concomitant]
     Indication: GOUT
  11. DYAZIDE [Concomitant]
     Indication: HYPERTENSION
     Dosage: 1-35.5/25MG DAILY
  12. LIDOCAINE HYDROCHLORIDE IN PLASTIC CONTAINER [Concomitant]
     Indication: PAIN
     Dosage: PATCH PRN
  13. ALLEGRA [Concomitant]
     Indication: HYPERSENSITIVITY
     Dosage: DAILY
  14. PROTONIX [Concomitant]
     Indication: GASTROOESOPHAGEAL REFLUX DISEASE
     Dosage: DAILY
  15. PREDNISONE [Concomitant]
     Indication: PRODUCT USED FOR UNKNOWN INDICATION
  16. VICODIN ES [Concomitant]
     Indication: PAIN
  17. TYLENOL-500 [Concomitant]
     Indication: PRODUCT USED FOR UNKNOWN INDICATION
     Dosage: PRN
  18. ADVAIR [Concomitant]
     Indication: HYPERSENSITIVITY
     Dosage: PRN
  19. COLCHICINE [Concomitant]
     Indication: CHONDROCALCINOSIS PYROPHOSPHATE
  20. METHOTREXATE [Concomitant]
     Indication: PRODUCT USED FOR UNKNOWN INDICATION
  21. PLAQUENIL [Concomitant]
     Indication: ARTHRITIS

REACTIONS (7)
  - WEIGHT DECREASED [None]
  - INFLUENZA LIKE ILLNESS [None]
  - LYMPHADENOPATHY [None]
  - ARTHRITIS [None]
  - FUNGAL OESOPHAGITIS [None]
  - HYPERHIDROSIS [None]
  - DECREASED APPETITE [None]
